FAERS Safety Report 9069473 (Version 1)
Quarter: 2013Q1

REPORT INFORMATION
  Report Type: Spontaneous
  Country: FR (occurrence: FR)
  Receive Date: 20130215
  Receipt Date: 20130215
  Transmission Date: 20140127
  Serious: Yes (Hospitalization, Other)
  Sender: FDA-Public Use
  Company Number: FR-BRISTOL-MYERS SQUIBB COMPANY-17362708

PATIENT
  Age: 84 Year
  Sex: Male

DRUGS (10)
  1. APROVEL TABS 300 MG [Suspect]
     Indication: HYPERTENSION
     Route: 048
     Dates: end: 20121220
  2. DIFFU-K [Interacting]
     Route: 048
     Dates: end: 20121220
  3. TEMERIT [Interacting]
     Dosage: TEMERIT 5 MG
     Route: 048
     Dates: end: 20121220
  4. GLUCOPHAGE [Suspect]
     Indication: DIABETES MELLITUS
     Route: 048
     Dates: end: 20121220
  5. FUROSEMIDE [Suspect]
     Route: 048
     Dates: end: 20121220
  6. ZANIDIP [Suspect]
     Indication: HYPERTENSION
     Route: 048
     Dates: end: 20121220
  7. EUPRESSYL [Suspect]
     Indication: HYPERTENSION
     Dosage: CAPSULE
     Route: 048
     Dates: end: 20121220
  8. TRILEPTAL [Suspect]
     Route: 048
     Dates: start: 200405, end: 20121220
  9. TARDYFERON [Suspect]
     Route: 048
     Dates: end: 20121220
  10. PREVISCAN [Concomitant]
     Indication: ATRIAL FIBRILLATION
     Dosage: PREVISCAN 20 MG
     Route: 048

REACTIONS (4)
  - Hyperkalaemia [Recovered/Resolved]
  - Renal failure acute [Recovered/Resolved]
  - Drug interaction [Unknown]
  - Bundle branch block left [Unknown]
